FAERS Safety Report 24427040 (Version 2)
Quarter: 2025Q3

REPORT INFORMATION
  Report Type: Spontaneous
  Country: US (occurrence: US)
  Receive Date: 20241011
  Receipt Date: 20250911
  Transmission Date: 20251021
  Serious: No
  Sender: SANDOZ
  Company Number: US-002147023-NVSC2023US145733

PATIENT
  Sex: Female

DRUGS (16)
  1. ATORVASTATIN [Suspect]
     Active Substance: ATORVASTATIN
     Indication: Axial spondyloarthritis
     Route: 048
  2. ASPIRIN [Suspect]
     Active Substance: ASPIRIN
     Indication: Axial spondyloarthritis
     Route: 048
  3. CELECOXIB [Suspect]
     Active Substance: CELECOXIB
     Indication: Axial spondyloarthritis
     Route: 048
  4. DULOXETINE [Suspect]
     Active Substance: DULOXETINE
     Indication: Axial spondyloarthritis
     Route: 048
  5. ETODOLAC [Suspect]
     Active Substance: ETODOLAC
     Indication: Axial spondyloarthritis
     Route: 065
  6. HYDROCHLOROTHIAZIDE [Suspect]
     Active Substance: HYDROCHLOROTHIAZIDE
     Indication: Axial spondyloarthritis
     Route: 048
  7. IBUPROFEN [Suspect]
     Active Substance: IBUPROFEN
     Indication: Axial spondyloarthritis
     Route: 065
  8. MONTELUKAST [Suspect]
     Active Substance: MONTELUKAST
     Indication: Axial spondyloarthritis
     Route: 048
  9. MELOXICAM [Suspect]
     Active Substance: MELOXICAM
     Indication: Axial spondyloarthritis
     Route: 065
  10. NABUMETONE [Suspect]
     Active Substance: NABUMETONE
     Indication: Axial spondyloarthritis
     Route: 048
  11. PIROXICAM [Suspect]
     Active Substance: PIROXICAM
     Indication: Axial spondyloarthritis
     Route: 065
  12. POTASSIUM CHLORIDE [Suspect]
     Active Substance: POTASSIUM CHLORIDE
     Indication: Axial spondyloarthritis
     Route: 048
  13. TELMISARTAN [Suspect]
     Active Substance: TELMISARTAN
     Indication: Axial spondyloarthritis
     Route: 048
  14. VITAMIN D3 [Suspect]
     Active Substance: CHOLECALCIFEROL
     Indication: Axial spondyloarthritis
     Route: 048
  15. VOLTAREN [Suspect]
     Active Substance: DICLOFENAC SODIUM
     Indication: Axial spondyloarthritis
     Route: 061
  16. XYLOCAINE [Suspect]
     Active Substance: LIDOCAINE HYDROCHLORIDE
     Indication: Product used for unknown indication
     Route: 061

REACTIONS (21)
  - Bone disorder [Unknown]
  - Soft tissue swelling [Unknown]
  - Groin pain [Unknown]
  - Joint noise [Unknown]
  - Foot deformity [Unknown]
  - Musculoskeletal stiffness [Unknown]
  - Back pain [Not Recovered/Not Resolved]
  - Arthralgia [Not Recovered/Not Resolved]
  - Pain in extremity [Not Recovered/Not Resolved]
  - Pain [Unknown]
  - Hypoaesthesia [Unknown]
  - Meralgia paraesthetica [Not Recovered/Not Resolved]
  - Heart rate irregular [Unknown]
  - Palpitations [Unknown]
  - Constipation [Unknown]
  - Dyspepsia [Unknown]
  - Paraesthesia [Unknown]
  - Myalgia [Unknown]
  - Joint swelling [Unknown]
  - Drug ineffective [Unknown]
  - Product use in unapproved indication [Unknown]
